FAERS Safety Report 22315278 (Version 1)
Quarter: 2023Q2

REPORT INFORMATION
  Report Type: Spontaneous
  Country: US (occurrence: None)
  Receive Date: 20230511
  Receipt Date: 20230511
  Transmission Date: 20230721
  Serious: Yes (Other)
  Sender: FDA-Public Use
  Company Number: None

PATIENT
  Age: 54 Year
  Sex: Female
  Weight: 86.18 kg

DRUGS (2)
  1. LEVOTHYROXINE SODIUM [Suspect]
     Active Substance: LEVOTHYROXINE SODIUM
     Indication: Hypothyroidism
     Dosage: 125 MCG DAILY ORAL
     Route: 048
     Dates: start: 20230117, end: 20230316
  2. LEVOTHYROXINE [Suspect]
     Active Substance: LEVOTHYROXINE
     Indication: Hypothyroidism
     Dosage: 112 MCG DAILY ORAL
     Route: 048
     Dates: start: 20230316, end: 20230412

REACTIONS (6)
  - Dizziness [None]
  - Headache [None]
  - Irritability [None]
  - Fatigue [None]
  - Anxiety [None]
  - Dizziness [None]
